FAERS Safety Report 20136712 (Version 1)
Quarter: 2021Q4

REPORT INFORMATION
  Report Type: Spontaneous
  Country: US (occurrence: US)
  Receive Date: 20211201
  Receipt Date: 20211201
  Transmission Date: 20220303
  Serious: No
  Sender: FDA-Public Use
  Company Number: US-MYLANLABS-2021M1086761

PATIENT
  Sex: Male
  Weight: 96 kg

DRUGS (3)
  1. ESTRADIOL TRANSDERMAL SYSTEM [Suspect]
     Active Substance: ESTRADIOL
     Indication: Transgender hormonal therapy
     Dosage: 0.1 MILLIGRAM, QD
     Route: 062
     Dates: start: 20211108
  2. ALDACTONE                          /00006201/ [Concomitant]
     Dosage: UNK
     Dates: start: 20210917
  3. CALCIUM ACETATE [Suspect]
     Active Substance: CALCIUM ACETATE
     Dosage: UNK

REACTIONS (3)
  - Product adhesion issue [Unknown]
  - Off label use [Unknown]
  - Wrong technique in product usage process [Unknown]
